FAERS Safety Report 7552463-0 (Version None)
Quarter: 2011Q2

REPORT INFORMATION
  Report Type: 
  Country: None (occurrence: None)
  Receive Date: 20110616
  Receipt Date: 20110606
  Transmission Date: 20111010
  Serious: Yes (Life-Threatening)
  Sender: FDA-Public Use
  Company Number: FR-BAXTER-2011BH019239

PATIENT
  Age: 4 Year
  Sex: Male

DRUGS (25)
  1. VINCRISTINE [Suspect]
     Indication: PRECURSOR B-LYMPHOBLASTIC LYMPHOMA
     Route: 042
     Dates: start: 20110221, end: 20110221
  2. VINCRISTINE [Suspect]
     Route: 042
     Dates: start: 20110214, end: 20110214
  3. LANSOYL [Concomitant]
     Indication: PRODUCT USED FOR UNKNOWN INDICATION
     Route: 065
  4. FUNGIZONE [Concomitant]
     Indication: PRODUCT USED FOR UNKNOWN INDICATION
     Route: 065
  5. ZOPHREN [Concomitant]
     Indication: PRODUCT USED FOR UNKNOWN INDICATION
     Route: 065
  6. DEPO-MEDROL [Concomitant]
     Indication: PROPHYLAXIS
     Route: 037
     Dates: start: 20110309, end: 20110309
  7. CYTARABINE [Suspect]
     Route: 058
     Dates: start: 20100801
  8. KIDROLASE [Suspect]
     Route: 042
     Dates: start: 20100601
  9. CYCLOPHOSPHAMIDE [Suspect]
     Indication: PRECURSOR B-LYMPHOBLASTIC LYMPHOMA
     Route: 042
     Dates: start: 20110308, end: 20110308
  10. KIDROLASE [Suspect]
     Indication: PRECURSOR B-LYMPHOBLASTIC LYMPHOMA
     Route: 042
     Dates: start: 20110221, end: 20110221
  11. KIDROLASE [Suspect]
     Route: 042
     Dates: start: 20110214, end: 20110214
  12. LANVIS [Suspect]
     Route: 048
     Dates: start: 20101101
  13. KIDROLASE [Suspect]
     Route: 042
     Dates: start: 20110224, end: 20110224
  14. METHOTREXATE [Suspect]
     Indication: PROPHYLAXIS
     Route: 037
     Dates: start: 20110309, end: 20110309
  15. LANVIS [Suspect]
     Indication: PRECURSOR B-LYMPHOBLASTIC LYMPHOMA
     Route: 048
     Dates: start: 20110308, end: 20110318
  16. CYTARABINE [Suspect]
     Route: 037
     Dates: start: 20110309, end: 20110309
  17. CYTARABINE [Suspect]
     Route: 058
     Dates: start: 20100801
  18. KIDROLASE [Suspect]
     Route: 042
     Dates: start: 20110217, end: 20110217
  19. CYCLOPHOSPHAMIDE [Suspect]
     Route: 042
     Dates: start: 20100701
  20. CERUBIDINE [Suspect]
     Indication: PRECURSOR B-LYMPHOBLASTIC LYMPHOMA
     Route: 042
     Dates: start: 20110214, end: 20110214
  21. CYTARABINE [Suspect]
     Indication: PRECURSOR B-LYMPHOBLASTIC LYMPHOMA
     Route: 058
     Dates: start: 20110308, end: 20110316
  22. CYTARABINE [Suspect]
     Route: 037
     Dates: start: 20110309, end: 20110309
  23. OMEPRAZOLE [Concomitant]
     Indication: PRODUCT USED FOR UNKNOWN INDICATION
     Route: 065
  24. CERUBIDINE [Suspect]
     Route: 042
     Dates: start: 20110221, end: 20110221
  25. CYTARABINE [Suspect]
     Indication: PROPHYLAXIS
     Route: 058
     Dates: start: 20110308, end: 20110316

REACTIONS (5)
  - ACUTE HEPATIC FAILURE [None]
  - VENOOCCLUSIVE LIVER DISEASE [None]
  - THROMBOCYTOPENIA [None]
  - HYPERAMMONAEMIA [None]
  - HYPERBILIRUBINAEMIA [None]
